FAERS Safety Report 7092454-X (Version None)
Quarter: 2010Q4

REPORT INFORMATION
  Report Type: 
  Country: None (occurrence: None)
  Receive Date: 20101108
  Receipt Date: 20101108
  Transmission Date: 20110411
  Serious: Yes (Other)
  Sender: FDA-Public Use
  Company Number: None

PATIENT
  Age: 58 Year
  Sex: Female
  Weight: 64.4108 kg

DRUGS (1)
  1. PROPRANOLOL [Suspect]
     Indication: HYPERTENSION
     Dosage: 1 CAPSULE 80MG QD PO
     Route: 048
     Dates: start: 20061115

REACTIONS (2)
  - DRUG INEFFECTIVE [None]
  - PRODUCT SUBSTITUTION ISSUE [None]
